FAERS Safety Report 6098793-3 (Version None)
Quarter: 2009Q1

REPORT INFORMATION
  Report Type: 
  Country: None (occurrence: None)
  Receive Date: 20090302
  Receipt Date: 20090218
  Transmission Date: 20090719
  Serious: Yes (Death)
  Sender: FDA-Public Use
  Company Number: JP-PFIZER INC-2009173040

PATIENT

DRUGS (1)
  1. SUNITINIB MALATE [Suspect]
     Indication: RENAL CELL CARCINOMA
     Dosage: UNK
     Route: 048
     Dates: start: 20081006, end: 20090125

REACTIONS (4)
  - DISEASE PROGRESSION [None]
  - HAEMOPTYSIS [None]
  - PNEUMOTHORAX [None]
  - RENAL CELL CARCINOMA [None]
